FAERS Safety Report 11692613 (Version 1)
Quarter: 2015Q4

REPORT INFORMATION
  Report Type: Spontaneous
  Country: US (occurrence: None)
  Receive Date: 20151102
  Receipt Date: 20151102
  Transmission Date: 20160304
  Serious: No
  Sender: FDA-Public Use
  Company Number: None

PATIENT
  Age: 64 Year
  Sex: Male

DRUGS (1)
  1. NEXAVAR [Suspect]
     Active Substance: SORAFENIB
     Indication: HEPATIC CANCER
     Route: 048
     Dates: start: 20151009

REACTIONS (4)
  - Blood urine present [None]
  - Constipation [None]
  - Abdominal pain [None]
  - Dry mouth [None]

NARRATIVE: CASE EVENT DATE: 20151029
